FAERS Safety Report 5279896-X (Version None)
Quarter: 2007Q1

REPORT INFORMATION
  Report Type: 
  Country: None (occurrence: None)
  Receive Date: 20070322
  Receipt Date: 20070314
  Transmission Date: 20070707
  Serious: Yes (Congenital Anomaly, Other)
  Sender: FDA-Public Use
  Company Number: 2007-01225

PATIENT
  Age: 35 Year
  Sex: Female

DRUGS (3)
  1. DEXAMETHASONE [Suspect]
     Indication: MATERNAL THERAPY TO ENHANCE FOETAL LUNG MATURITY
     Dates: start: 20050501, end: 20050501
  2. BRICANYL [Suspect]
     Indication: LABOUR ONSET DELAYED
     Dosage: SEE IMGE
     Route: 042
     Dates: start: 20050501, end: 20050501
  3. BRICANYL [Suspect]
     Indication: LABOUR ONSET DELAYED
     Dosage: SEE IMGE
     Route: 042
     Dates: start: 20050501, end: 20050501

REACTIONS (4)
  - ANEURYSM RUPTURED [None]
  - DRUG EXPOSURE DURING PREGNANCY [None]
  - INTRA-UTERINE DEATH [None]
  - PATENT DUCTUS ARTERIOSUS [None]
